FAERS Safety Report 10161785 (Version 4)
Quarter: 2014Q4

REPORT INFORMATION
  Report Type: Spontaneous
  Country: CH (occurrence: None)
  Receive Date: 20140507
  Receipt Date: 20141112
  Transmission Date: 20150528
  Serious: Yes (Other)
  Sender: FDA-Public Use
  Company Number: 20140241

PATIENT
  Age: 34 Year
  Sex: Male
  Weight: 75 kg

DRUGS (4)
  1. FERINJECT [Concomitant]
     Active Substance: FERRIC CARBOXYMALTOSE
     Indication: MIGRAINE
  2. FERINJECT [Suspect]
     Active Substance: FERRIC CARBOXYMALTOSE
     Indication: IRON DEFICIENCY ANAEMIA
     Dosage: 1000 MG IN 125 ML
     Route: 041
     Dates: start: 20110201, end: 20110201
  3. FERINJECT [Suspect]
     Active Substance: FERRIC CARBOXYMALTOSE
     Indication: IRON DEFICIENCY ANAEMIA
     Dosage: (5 TOTAL)
     Route: 041
     Dates: start: 20100623, end: 20101119
  4. NOVALGIN [Suspect]
     Active Substance: METAMIZOLE SODIUM

REACTIONS (11)
  - Liver injury [None]
  - Prescribed overdose [None]
  - Headache [None]
  - Vertigo [None]
  - Stress [None]
  - Viral infection [None]
  - Facial pain [None]
  - Off label use [None]
  - Haemochromatosis [None]
  - Iron overload [None]
  - Epstein-Barr virus test positive [None]

NARRATIVE: CASE EVENT DATE: 201211
